FAERS Safety Report 9892623 (Version 1)
Quarter: 2014Q1

REPORT INFORMATION
  Report Type: Spontaneous
  Country: US (occurrence: US)
  Receive Date: 20140212
  Receipt Date: 20140212
  Transmission Date: 20141002
  Serious: No
  Sender: FDA-Public Use
  Company Number: US-GILEAD-2012-0050653

PATIENT
  Sex: Female

DRUGS (1)
  1. VISTIDE [Suspect]
     Route: 061

REACTIONS (3)
  - Vulvovaginal erythema [Unknown]
  - Vulvovaginal discomfort [Unknown]
  - Dysuria [Unknown]
